FAERS Safety Report 9032195 (Version 1)
Quarter: 2013Q1

REPORT INFORMATION
  Report Type: Spontaneous
  Country: ES (occurrence: ES)
  Receive Date: 20130122
  Receipt Date: 20130122
  Transmission Date: 20140127
  Serious: Yes (Life-Threatening, Hospitalization, Other)
  Sender: FDA-Public Use
  Company Number: ES-PFIZER INC-2013024203

PATIENT
  Age: 77 Year
  Sex: Female

DRUGS (6)
  1. TRANGOREX [Suspect]
     Indication: ATRIAL FIBRILLATION
     Dosage: UNK
     Route: 048
     Dates: end: 20101019
  2. CARDURAN NEO [Interacting]
     Indication: HYPERTENSION
     Dosage: UNK, DAILY
     Route: 048
     Dates: start: 20100923, end: 20101019
  3. COROPRES [Interacting]
     Indication: ATRIAL FIBRILLATION
     Dosage: UNK, DAILY
     Route: 048
     Dates: end: 20101019
  4. ACETYLSALICYLIC ACID [Concomitant]
     Dosage: UNK
  5. ALLOPURINOL [Concomitant]
     Dosage: UNK
  6. SEGURIL [Concomitant]
     Dosage: UNK
     Dates: start: 200609

REACTIONS (5)
  - Drug interaction [Recovered/Resolved with Sequelae]
  - Nodal rhythm [Recovered/Resolved with Sequelae]
  - Oxygen saturation decreased [Unknown]
  - Anuria [Unknown]
  - Haemoglobin decreased [Unknown]
